FAERS Safety Report 7034735-1 (Version None)
Quarter: 2010Q4

REPORT INFORMATION
  Report Type: 
  Country: None (occurrence: None)
  Receive Date: 20101008
  Receipt Date: 20100928
  Transmission Date: 20110411
  Serious: Yes (Other)
  Sender: FDA-Public Use
  Company Number: PHHY2010BR31146

PATIENT
  Age: 67 Year
  Sex: Female
  Weight: 56 kg

DRUGS (3)
  1. DIOVAN [Suspect]
     Dosage: 80 MG AT NIGHT
  2. DIOVAN [Suspect]
     Dosage: 1 TABLET (160 MG) IN THE MORNING AND A HALF TABLET AFTER LAUNCH
  3. ATENOLOL [Concomitant]

REACTIONS (4)
  - BLOOD CHOLESTEROL INCREASED [None]
  - DRUG PRESCRIBING ERROR [None]
  - HYPERTENSION [None]
  - INFARCTION [None]
